FAERS Safety Report 6160812-3 (Version None)
Quarter: 2009Q2

REPORT INFORMATION
  Report Type: 
  Country: None (occurrence: None)
  Receive Date: 20090420
  Receipt Date: 20090410
  Transmission Date: 20091009
  Serious: Yes (Hospitalization)
  Sender: FDA-Public Use
  Company Number: HK-TYCO HEALTHCARE/MALLINCKRODT-T200900853

PATIENT

DRUGS (15)
  1. TRAMADOL HCL [Suspect]
     Dosage: UNK
     Route: 048
     Dates: start: 20080909
  2. MARAVIROC [Suspect]
     Indication: HIV INFECTION
     Dosage: 150 MG, BID
     Route: 048
     Dates: start: 20080312
  3. DICLOFENAC SODIUM [Suspect]
     Dosage: UNK
     Route: 048
     Dates: start: 20080731
  4. NAPROSYN [Suspect]
     Dosage: UNK
     Route: 048
     Dates: start: 20071025
  5. RALTEGRAVIR [Concomitant]
     Dosage: 400 MG, BID
     Route: 048
     Dates: start: 20080312
  6. ATAZANAVIR SULFATE [Concomitant]
     Dosage: UNK
     Dates: start: 20070404
  7. AMITRIPTLINE HYDROCHLORIDE TAB [Concomitant]
     Dosage: UNK
     Dates: start: 20080129
  8. CLOTRIMAZOLE [Concomitant]
     Dosage: UNK
     Dates: start: 19991208
  9. VITAMIN K1 [Concomitant]
     Dosage: UNK
     Dates: start: 20080304
  10. DOTHIEPIN                          /00160401/ [Concomitant]
     Dosage: UNK
     Dates: start: 20060412
  11. ITRACONAZOLE [Concomitant]
     Dosage: UNK
     Dates: start: 20020904
  12. LAMIVUDINE [Concomitant]
     Dosage: UNK
     Dates: start: 19991208
  13. MULTI-VITAMINS [Concomitant]
     Dosage: UNK
     Dates: start: 19991208
  14. FOLIC ACID [Concomitant]
     Dosage: UNK
     Dates: start: 19991208
  15. FAMOTIDINE [Concomitant]
     Dosage: UNK
     Dates: start: 20080731

REACTIONS (3)
  - ABDOMINAL DISTENSION [None]
  - CONSTIPATION [None]
  - PYREXIA [None]
